FAERS Safety Report 7989461 (Version 6)
Quarter: 2013Q2

REPORT INFORMATION
  Report Type: Report from Study
  Country: ES (occurrence: ES)
  Receive Date: 20110614
  Receipt Date: 20130624
  Transmission Date: 20140414
  Serious: Yes (Hospitalization)
  Sender: FDA-Public Use
  Company Number: ES-NOVOPROD-329358

PATIENT
  Age: 67 Year
  Sex: Male
  Weight: 68.5 kg

DRUGS (17)
  1. LIRAGLUTIDE FLEXPEN [Suspect]
     Indication: TYPE 2 DIABETES MELLITUS
     Dosage: 1.8 MG, QD
     Route: 058
     Dates: start: 20110322, end: 20110603
  2. LIRAGLUTIDE FLEXPEN [Suspect]
     Dosage: 1.8 MG, QD
     Route: 058
     Dates: start: 20110920
  3. PRAVASTATINA [Concomitant]
     Indication: DYSLIPIDAEMIA
     Dosage: 40.0 UNK, UNK
     Dates: start: 20080828
  4. LEVOTIROXINA [Concomitant]
     Indication: HYPOTHYROIDISM
     Dosage: 100 UG, QD
     Dates: start: 20090525
  5. CALCIUM POLYSTYRENE SULFONATE [Concomitant]
     Indication: OSTEOPENIA
     Dosage: 30 G, QD
     Dates: start: 20090907
  6. CALCIFEDIOL [Concomitant]
     Indication: OSTEOPENIA
     Dosage: 0.2 MG, QD
     Dates: start: 20101213
  7. LANTUS                             /01483501/ [Concomitant]
     Indication: DIABETES MELLITUS
     Dosage: 14 IU, QD
     Dates: start: 20110421
  8. GLICLAZIDA [Concomitant]
     Indication: DIABETES MELLITUS
     Dosage: 90 MG, QD
     Dates: start: 20100419
  9. ACID ACETYLSALICYLIC [Concomitant]
     Indication: PROPHYLAXIS
     Dosage: 100 MG, QD
     Dates: start: 20090212
  10. CYANOCOBALAMIN [Concomitant]
     Indication: VITAMIN B12 DEFICIENCY
     Dosage: 2 UG, QD
     Dates: start: 20080903
  11. FOLIC ACID [Concomitant]
     Indication: ANAEMIA
     Dosage: 400 UG, QD
     Dates: start: 20080903
  12. DIOSMINE [Concomitant]
     Indication: VENOUS INSUFFICIENCY
     Dosage: 400 MG, QD
     Dates: start: 20080902
  13. IRBESARTAN [Concomitant]
     Dosage: 300 MG, QD
     Dates: start: 20080903
  14. DILTIAZEM [Concomitant]
     Dosage: 240 MG, QD
     Dates: start: 20080902
  15. TORASEMID [Concomitant]
     Indication: HYPERTENSION
     Dosage: 5 MG, UNK
     Dates: start: 20080903
  16. ISCOVER [Concomitant]
     Indication: PROPHYLAXIS
     Dosage: 75 MG, UNK
     Dates: start: 20110629
  17. OMEPRAZOL                          /00661201/ [Concomitant]
     Indication: PROPHYLAXIS
     Dosage: 20 MG, QD
     Dates: start: 20110629

REACTIONS (1)
  - Sigmoiditis [Recovered/Resolved]
